FAERS Safety Report 16129596 (Version 1)
Quarter: 2019Q1

REPORT INFORMATION
  Report Type: Spontaneous
  Country: US (occurrence: US)
  Receive Date: 20190328
  Receipt Date: 20190328
  Transmission Date: 20190418
  Serious: Yes (Hospitalization, Other)
  Sender: FDA-Public Use
  Company Number: US-JNJFOC-20190326189

PATIENT

DRUGS (1)
  1. USTEKINUMAB [Suspect]
     Active Substance: USTEKINUMAB
     Indication: PRODUCT USED FOR UNKNOWN INDICATION
     Route: 065

REACTIONS (5)
  - Organising pneumonia [Unknown]
  - Alveolitis allergic [Unknown]
  - Interstitial lung disease [Unknown]
  - Respiratory failure [Unknown]
  - Eosinophilic pneumonia [Unknown]
